FAERS Safety Report 23084431 (Version 8)
Quarter: 2025Q1

REPORT INFORMATION
  Report Type: Report from Study
  Country: US (occurrence: US)
  Receive Date: 20231019
  Receipt Date: 20250213
  Transmission Date: 20250409
  Serious: Yes (Other)
  Sender: TAKEDA
  Company Number: US-TAKEDA-2023TUS083121

PATIENT
  Sex: Female

DRUGS (17)
  1. BRIGATINIB [Suspect]
     Active Substance: BRIGATINIB
     Indication: Lung neoplasm malignant
     Dosage: 180 MILLIGRAM, QD
  2. BRIGATINIB [Suspect]
     Active Substance: BRIGATINIB
     Indication: Neoplasm malignant
     Dosage: 180 MILLIGRAM, QD
  3. BRIGATINIB [Suspect]
     Active Substance: BRIGATINIB
  4. BRIGATINIB [Suspect]
     Active Substance: BRIGATINIB
     Dosage: 180 MILLIGRAM, QD
  5. COUMADIN [Concomitant]
     Active Substance: WARFARIN SODIUM
  6. AMLODIPINE [Concomitant]
     Active Substance: AMLODIPINE BESYLATE
  7. ANUSOL NOS [Concomitant]
     Active Substance: BALSAM PERU\BENZYL BENZOATE\BISMUTH HYDROXIDE\BISMUTH SUBGALLATE\HYDROCORTISONE ACETATE\ZINC OXIDE
  8. DIFICID [Concomitant]
     Active Substance: FIDAXOMICIN
  9. ESCITALOPRAM [Concomitant]
     Active Substance: ESCITALOPRAM OXALATE
  10. GABAPENTIN [Concomitant]
     Active Substance: GABAPENTIN
  11. KEPPRA [Concomitant]
     Active Substance: LEVETIRACETAM
  12. KLONOPIN [Concomitant]
     Active Substance: CLONAZEPAM
  13. PROTONIX [Concomitant]
     Active Substance: PANTOPRAZOLE SODIUM
  14. TRAMADOL [Concomitant]
     Active Substance: TRAMADOL
  15. TYLENOL [Concomitant]
     Active Substance: ACETAMINOPHEN
  16. VOLTAREN [Concomitant]
     Active Substance: DICLOFENAC SODIUM
  17. VOWST [Concomitant]
     Active Substance: DONOR HUMAN STOOL SPORES (ETHANOL TREATED)

REACTIONS (7)
  - Clostridium difficile infection [Not Recovered/Not Resolved]
  - Photosensitivity reaction [Unknown]
  - Blister [Unknown]
  - Burns second degree [Unknown]
  - Pruritus [Unknown]
  - Rash [Unknown]
  - Pancreatic enzymes increased [Unknown]
